FAERS Safety Report 5328724-2 (Version None)
Quarter: 2007Q2

REPORT INFORMATION
  Report Type: 
  Country: None (occurrence: None)
  Receive Date: 20070518
  Receipt Date: 20070510
  Transmission Date: 20071010
  Serious: Yes (Other)
  Sender: FDA-Public Use
  Company Number: GB-JNJFOC-20070502702

PATIENT
  Sex: Female
  Weight: 53 kg

DRUGS (11)
  1. REMICADE [Suspect]
     Indication: RHEUMATOID ARTHRITIS
     Route: 042
  2. ASPIRIN [Concomitant]
  3. ATENOLOL [Concomitant]
  4. ATORVASTATIN CALCIUM [Concomitant]
  5. CALCICHEW D3 [Concomitant]
  6. CO-PROXAMOL [Concomitant]
  7. MTX [Concomitant]
  8. NIFEDIPINE [Concomitant]
  9. OMEPRAZOLE [Concomitant]
  10. SUMATRIPTAN SUCCINATE [Concomitant]
  11. TRAMADOL HCL [Concomitant]

REACTIONS (1)
  - BASAL CELL CARCINOMA [None]
